FAERS Safety Report 9537504 (Version 1)
Quarter: 2013Q3

REPORT INFORMATION
  Report Type: Spontaneous
  Country: GB (occurrence: GB)
  Receive Date: 20130919
  Receipt Date: 20130919
  Transmission Date: 20140515
  Serious: Yes (Other)
  Sender: FDA-Public Use
  Company Number: GB-JNJFOC-20130908535

PATIENT
  Age: 39 Year
  Sex: Male

DRUGS (3)
  1. ITRACONAZOLE [Suspect]
     Indication: FUNGAL SKIN INFECTION
     Route: 048
     Dates: start: 20130819, end: 20130820
  2. LAMOTRIGINE [Concomitant]
     Route: 065
     Dates: start: 201204
  3. LEVETIRACETAM [Concomitant]
     Route: 065
     Dates: start: 201204

REACTIONS (1)
  - Epilepsy [Recovered/Resolved]
